FAERS Safety Report 5205747-5 (Version None)
Quarter: 2007Q1

REPORT INFORMATION
  Report Type: 
  Country: None (occurrence: None)
  Receive Date: 20070108
  Receipt Date: 20070108
  Transmission Date: 20070707
  Serious: No
  Sender: FDA-Public Use
  Company Number: None

PATIENT
  Sex: Female
  Weight: 65.7716 kg

DRUGS (1)
  1. ZICAM GEL NASAL SPRAY MATRIXX [Suspect]
     Indication: SINUS CONGESTION
     Dosage: 2 ^PUMPS^ IN EACH NOSTRIL ONCE A DAY NASAL
     Route: 045
     Dates: start: 20041120, end: 20041201

REACTIONS (2)
  - ANOSMIA [None]
  - SINUS HEADACHE [None]
